FAERS Safety Report 9136625 (Version 1)
Quarter: 2013Q1

REPORT INFORMATION
  Report Type: Spontaneous
  Country: US (occurrence: US)
  Receive Date: 20130304
  Receipt Date: 20130304
  Transmission Date: 20140127
  Serious: No
  Sender: FDA-Public Use
  Company Number: US-ABBOTT-12P-163-0959617-00

PATIENT
  Sex: Male
  Weight: 97.61 kg

DRUGS (5)
  1. ANDROGEL 1% [Suspect]
     Indication: BLOOD TESTOSTERONE DECREASED
     Dosage: 5 PUMPS/DAY. APPLIES TO ARMS AND STOMACH
  2. FOLIC ACID [Concomitant]
     Indication: SARCOIDOSIS
  3. PREDNISONE [Concomitant]
     Indication: SARCOIDOSIS
  4. METHOTREXATE [Concomitant]
     Indication: SARCOIDOSIS
  5. LISINOPRIL [Concomitant]
     Indication: BLOOD PRESSURE

REACTIONS (1)
  - Diabetes mellitus [Not Recovered/Not Resolved]
